FAERS Safety Report 20482414 (Version 1)
Quarter: 2022Q1

REPORT INFORMATION
  Report Type: Spontaneous
  Country: US (occurrence: US)
  Receive Date: 20220217
  Receipt Date: 20220217
  Transmission Date: 20220423
  Serious: Yes (Other)
  Sender: FDA-Public Use
  Company Number: US-WOCKHARDT BIO AG-2022WBA000015

PATIENT
  Age: 37 Year
  Sex: Female

DRUGS (5)
  1. LACTULOSE [Suspect]
     Active Substance: LACTULOSE
     Indication: Hepatic encephalopathy
     Dosage: UNK
     Route: 065
  2. CEFEPIME [Concomitant]
     Active Substance: CEFEPIME HYDROCHLORIDE
     Indication: Sepsis
     Dosage: UNK
     Route: 065
  3. VANCOMYCIN [Concomitant]
     Active Substance: VANCOMYCIN
     Indication: Sepsis
     Dosage: UNK
     Route: 065
  4. Piiperacillin/tazobactam [Concomitant]
     Indication: Hepatic encephalopathy
     Dosage: UNK
     Route: 065
  5. RIFAXIMIN [Concomitant]
     Active Substance: RIFAXIMIN
     Indication: Hepatic encephalopathy
     Dosage: UNK
     Route: 065

REACTIONS (1)
  - Pneumatosis intestinalis [Recovered/Resolved]
